FAERS Safety Report 11061218 (Version 1)
Quarter: 2015Q2

REPORT INFORMATION
  Report Type: Spontaneous
  Country: US (occurrence: None)
  Receive Date: 20150423
  Receipt Date: 20150423
  Transmission Date: 20150821
  Serious: Yes (Hospitalization, Other)
  Sender: FDA-Public Use
  Company Number: None

PATIENT
  Age: 52 Year
  Sex: Female
  Weight: 57.9 kg

DRUGS (11)
  1. NORCO 5MG-325MG ORAL TABLET [Concomitant]
  2. OMEPRAZOLE 20MG ORAL DELAYED RELEASE CAPSULE [Concomitant]
  3. MULTIVITAMINS AND MINERALS [Concomitant]
  4. TYLENOL 325MG ORAL TABLET [Concomitant]
  5. COLACE 100MG ORAL CAPSULE [Concomitant]
  6. TIZANIDINE 4MG ORAL TABLET [Concomitant]
  7. BACITRACIN-POLYMYXIN B 500 UNITS [Concomitant]
  8. MIRALAX ORAL POWDER FOR RECONSTITUTION [Concomitant]
  9. FERROUS SULFATE 325MG [Concomitant]
  10. TEFLARO [Suspect]
     Active Substance: CEFTAROLINE FOSAMIL
     Indication: STAPHYLOCOCCAL INFECTION
     Route: 042
     Dates: start: 20150330, end: 20150417
  11. TEFLARO [Suspect]
     Active Substance: CEFTAROLINE FOSAMIL
     Indication: ANTIBIOTIC LEVEL ABOVE THERAPEUTIC
     Route: 042
     Dates: start: 20150330, end: 20150417

REACTIONS (3)
  - Neutropenia [None]
  - Candida infection [None]
  - Rash [None]

NARRATIVE: CASE EVENT DATE: 20150417
